FAERS Safety Report 6600732-0 (Version None)
Quarter: 2010Q1

REPORT INFORMATION
  Report Type: 
  Country: None (occurrence: None)
  Receive Date: 20100223
  Receipt Date: 20100223
  Transmission Date: 20100710
  Serious: Yes (Other)
  Sender: FDA-Public Use
  Company Number: None

PATIENT
  Age: 73 Year
  Sex: Female
  Weight: 61.2356 kg

DRUGS (1)
  1. TERBINAFINE HCL [Suspect]
     Indication: ONYCHOMYCOSIS
     Dosage: 1 250 MG TAB DAILY PO
     Route: 048
     Dates: start: 20091119, end: 20100217

REACTIONS (3)
  - ANAPHYLACTOID REACTION [None]
  - DRUG INEFFECTIVE [None]
  - DRY SKIN [None]
